FAERS Safety Report 8579579-4 (Version None)
Quarter: 2012Q3

REPORT INFORMATION
  Report Type: 
  Country: None (occurrence: None)
  Receive Date: 20120808
  Receipt Date: 20120725
  Transmission Date: 20120928
  Serious: No
  Sender: FDA-Public Use
  Company Number: US-BAYER-2012-071408

PATIENT
  Age: 31 Year
  Sex: Female
  Weight: 79.365 kg

DRUGS (2)
  1. MIRENA [Suspect]
     Indication: MENORRHAGIA
  2. MIRENA [Suspect]
     Indication: CONTRACEPTION
     Dosage: 20 MCG/24HR, CONT
     Dates: start: 20120531, end: 20120729

REACTIONS (8)
  - VULVOVAGINAL PRURITUS [None]
  - VULVOVAGINAL SWELLING [None]
  - OEDEMA PERIPHERAL [None]
  - DRUG HYPERSENSITIVITY [None]
  - URTICARIA [None]
  - PRURITUS GENERALISED [None]
  - WEIGHT INCREASED [None]
  - HEADACHE [None]
